FAERS Safety Report 7606294-3 (Version None)
Quarter: 2011Q3

REPORT INFORMATION
  Report Type: 
  Country: None (occurrence: None)
  Receive Date: 20110713
  Receipt Date: 20110629
  Transmission Date: 20111222
  Serious: Yes (Other)
  Sender: FDA-Public Use
  Company Number: US-BAYER-2010-008412

PATIENT
  Age: 26 Year
  Sex: Female
  Weight: 86.168 kg

DRUGS (7)
  1. YAZ [Suspect]
     Indication: CONTRACEPTION
     Dosage: UNK
     Route: 048
     Dates: start: 20080801, end: 20090701
  2. OXYCODONE HCL AND ACETAMINOPHEN [Concomitant]
  3. SULFAMETHOXAZOLE AND TRIMETHOPRIM [Concomitant]
  4. YAZ [Suspect]
     Indication: PREMENSTRUAL SYNDROME
  5. HYDROCODONE BITARTRATE AND ACETAMINOPHEN [Concomitant]
  6. DOXYCYCLINE [Concomitant]
  7. PROMETHEGAN [Concomitant]

REACTIONS (8)
  - ANXIETY [None]
  - INJURY [None]
  - EMOTIONAL DISTRESS [None]
  - GALLBLADDER DISORDER [None]
  - CHOLECYSTITIS [None]
  - CHOLELITHIASIS [None]
  - CHOLECYSTITIS CHRONIC [None]
  - ABDOMINAL PAIN UPPER [None]
